FAERS Safety Report 14974523 (Version 1)
Quarter: 2018Q2

REPORT INFORMATION
  Report Type: Spontaneous
  Country: US (occurrence: US)
  Receive Date: 20180515
  Receipt Date: 20180515
  Transmission Date: 20180711
  Serious: Yes (Life-Threatening)
  Sender: FDA-Public Use
  Company Number: None

PATIENT
  Age: 37 Year
  Sex: Female
  Weight: 93 kg

DRUGS (1)
  1. YAZ [Suspect]
     Active Substance: DROSPIRENONE\ETHINYL ESTRADIOL
     Route: 048

REACTIONS (15)
  - Myocardial strain [None]
  - Cyanosis [None]
  - Loss of consciousness [None]
  - Dyspnoea [None]
  - Breast cancer metastatic [None]
  - Tachycardia [None]
  - Traumatic liver injury [None]
  - Cardiac failure [None]
  - Pulmonary embolism [None]
  - Syncope [None]
  - Haemorrhage [None]
  - Hypoxia [None]
  - Pulse absent [None]
  - Injury [None]
  - Coma [None]

NARRATIVE: CASE EVENT DATE: 20180219
